FAERS Safety Report 5205875-4 (Version None)
Quarter: 2007Q1

REPORT INFORMATION
  Report Type: 
  Country: None (occurrence: None)
  Receive Date: 20070111
  Receipt Date: 20070107
  Transmission Date: 20070707
  Serious: Yes (Other)
  Sender: FDA-Public Use
  Company Number: 2007UW00340

PATIENT
  Age: 68 Year
  Sex: Female
  Weight: 97.5 kg

DRUGS (9)
  1. ARIMIDEX [Suspect]
     Indication: BREAST CANCER RECURRENT
     Route: 048
     Dates: start: 20060701
  2. AMARYL [Concomitant]
     Indication: BLOOD GLUCOSE INCREASED
  3. ALLEGRA [Concomitant]
  4. ZETIA [Concomitant]
  5. TRICHOR [Concomitant]
  6. HYDROCHLOROTHIAZIDE [Concomitant]
  7. ASPIRIN [Concomitant]
  8. COENZYME Q [Concomitant]
  9. PERSANTINE [Concomitant]

REACTIONS (1)
  - BLOOD GLUCOSE INCREASED [None]
